FAERS Safety Report 23718868 (Version 4)
Quarter: 2025Q1

REPORT INFORMATION
  Report Type: Report from Study
  Country: US (occurrence: US)
  Receive Date: 20240408
  Receipt Date: 20250318
  Transmission Date: 20250409
  Serious: Yes (Death, Hospitalization)
  Sender: BAUSCH AND LOMB
  Company Number: US-BAUSCH-BL-2023-018165

PATIENT
  Age: 73 Year
  Sex: Male

DRUGS (1)
  1. XIFAXAN [Suspect]
     Active Substance: RIFAXIMIN
     Indication: Encephalopathy
     Route: 048

REACTIONS (8)
  - Liver injury [Fatal]
  - Respiratory failure [Fatal]
  - Hyperkalaemia [Fatal]
  - Renal failure [Fatal]
  - Primary biliary cholangitis [Fatal]
  - Pneumonia [Unknown]
  - Fall [Not Recovered/Not Resolved]
  - Therapy interrupted [Unknown]

NARRATIVE: CASE EVENT DATE: 20240301
